FAERS Safety Report 7891033-1 (Version None)
Quarter: 2011Q4

REPORT INFORMATION
  Report Type: 
  Country: None (occurrence: None)
  Receive Date: 20111103
  Receipt Date: 20110728
  Transmission Date: 20120403
  Serious: No
  Sender: FDA-Public Use
  Company Number: US-AMGEN-USASP2011038325

PATIENT
  Sex: Female

DRUGS (1)
  1. ENBREL [Suspect]
     Indication: JUVENILE ARTHRITIS
     Dosage: 50 MG, 2 TIMES/WK
     Dates: start: 20080101

REACTIONS (6)
  - INJECTION SITE INDURATION [None]
  - INJECTION SITE HAEMATOMA [None]
  - INFLAMMATION [None]
  - INJECTION SITE URTICARIA [None]
  - DRUG EFFECT DECREASED [None]
  - INJECTION SITE ERYTHEMA [None]
